FAERS Safety Report 7823738-2 (Version None)
Quarter: 2011Q4

REPORT INFORMATION
  Report Type: 
  Country: None (occurrence: None)
  Receive Date: 20111019
  Receipt Date: 20111014
  Transmission Date: 20120403
  Serious: Yes (Other)
  Sender: FDA-Public Use
  Company Number: US-PFIZER INC-2011246977

PATIENT
  Sex: Female
  Weight: 83.9 kg

DRUGS (9)
  1. VERAPAMIL [Concomitant]
     Indication: HYPERTENSION
     Dosage: UNK
  2. LEVOTHYROXINE [Concomitant]
     Dosage: UNK
  3. LORTAB [Concomitant]
     Dosage: UNK
  4. IBUPROFEN [Concomitant]
     Dosage: UNK
  5. LOTREL [Concomitant]
     Dosage: UNK
  6. NEURONTIN [Suspect]
     Indication: NEUROPATHY PERIPHERAL
  7. FOLIC ACID [Concomitant]
     Dosage: UNK
  8. MAXZIDE [Concomitant]
     Indication: DIURETIC THERAPY
     Dosage: UNK
  9. NEURONTIN [Suspect]
     Indication: FIBROMYALGIA
     Dosage: 300 MG, 1X/DAY
     Dates: start: 20100101

REACTIONS (4)
  - BLOOD CHOLESTEROL INCREASED [None]
  - BLOOD GLUCOSE INCREASED [None]
  - HYPOTHYROIDISM [None]
  - ANAEMIA [None]
